FAERS Safety Report 15301405 (Version 1)
Quarter: 2018Q3

REPORT INFORMATION
  Report Type: Spontaneous
  Country: US (occurrence: US)
  Receive Date: 20180809
  Receipt Date: 20180809
  Transmission Date: 20181010
  Serious: Yes (Disabling, Other)
  Sender: FDA-Public Use
  Company Number: None

PATIENT
  Age: 51 Year
  Sex: Female
  Weight: 65.7 kg

DRUGS (1)
  1. BOTOX [Suspect]
     Active Substance: ONABOTULINUMTOXINA
     Indication: MIGRAINE
     Route: 030
     Dates: start: 20180109, end: 20180109

REACTIONS (20)
  - Injection site reaction [None]
  - Atrophy [None]
  - Bedridden [None]
  - Speech disorder [None]
  - Aphasia [None]
  - General physical condition abnormal [None]
  - Wheezing [None]
  - Throat tightness [None]
  - Migraine [None]
  - Disturbance in attention [None]
  - Eyelid oedema [None]
  - Skin discolouration [None]
  - Poisoning [None]
  - Depression [None]
  - Botulism [None]
  - Eyelid ptosis [None]
  - Neuropathy peripheral [None]
  - Blood count abnormal [None]
  - Alopecia [None]
  - Confusional state [None]

NARRATIVE: CASE EVENT DATE: 20180110
